FAERS Safety Report 16057002 (Version 1)
Quarter: 2019Q2

REPORT INFORMATION
  Report Type: Spontaneous
  Country: US (occurrence: US)
  Receive Date: 20190311
  Receipt Date: 20190311
  Transmission Date: 20190711
  Serious: Yes (Disabling, Other)
  Sender: FDA-Public Use
  Company Number: None

PATIENT
  Age: 74 Year
  Sex: Male
  Weight: 74.25 kg

DRUGS (1)
  1. TESTOSTERONE GEL 1.25 GMS PER ACTIVATION [Suspect]
     Active Substance: TESTOSTERONE
     Indication: BLOOD TESTOSTERONE FREE DECREASED
     Dates: start: 20180814, end: 20190301

REACTIONS (3)
  - Scab [None]
  - Skin haemorrhage [None]
  - Acne [None]

NARRATIVE: CASE EVENT DATE: 20190206
